FAERS Safety Report 4865165-6 (Version None)
Quarter: 2005Q4

REPORT INFORMATION
  Report Type: 
  Country: None (occurrence: None)
  Receive Date: 20051221
  Receipt Date: 20051221
  Transmission Date: 20060501
  Serious: Yes (Hospitalization)
  Sender: FDA-Public Use
  Company Number: None

PATIENT
  Age: 88 Year
  Sex: Female

DRUGS (1)
  1. LISINOPRIL [Suspect]
     Indication: RENAL FAILURE ACUTE
     Dosage: 20 MG PO DAILY
     Route: 048

REACTIONS (6)
  - ASTHENIA [None]
  - DIZZINESS [None]
  - NAUSEA [None]
  - SKIN TURGOR DECREASED [None]
  - TENDERNESS [None]
  - VOMITING [None]
